FAERS Safety Report 24015188 (Version 1)
Quarter: 2024Q2

REPORT INFORMATION
  Report Type: Other
  Country: CN (occurrence: CN)
  Receive Date: 20240626
  Receipt Date: 20240626
  Transmission Date: 20240716
  Serious: Yes (Hospitalization)
  Sender: FDA-Public Use
  Company Number: CN-B.Braun Medical Inc.-2158552

PATIENT
  Age: 83 Year
  Sex: Female

DRUGS (1)
  1. MEROPENEM [Suspect]
     Active Substance: MEROPENEM
     Indication: Pneumonia

REACTIONS (4)
  - Irritability [Recovered/Resolved]
  - Off label use [Recovered/Resolved]
  - Sleep disorder [Recovered/Resolved]
  - Psychomotor hyperactivity [Recovered/Resolved]
